FAERS Safety Report 26144129 (Version 1)
Quarter: 2025Q4

REPORT INFORMATION
  Report Type: Report from Study
  Country: US (occurrence: US)
  Receive Date: 20251211
  Receipt Date: 20251211
  Transmission Date: 20260117
  Serious: Yes (Life-Threatening, Hospitalization, Other)
  Sender: RANBAXY
  Company Number: US-SUN PHARMACEUTICAL INDUSTRIES LTD-2025R1-540831

PATIENT

DRUGS (1)
  1. VERAPAMIL [Suspect]
     Active Substance: VERAPAMIL HYDROCHLORIDE
     Indication: Type 1 diabetes mellitus
     Dosage: (AT LEAST 720 MG)
     Route: 065

REACTIONS (3)
  - Atrioventricular block [Unknown]
  - Product dose omission issue [Unknown]
  - Extra dose administered [Unknown]
